FAERS Safety Report 19191995 (Version 18)
Quarter: 2025Q2

REPORT INFORMATION
  Report Type: Report from Study
  Country: GB (occurrence: GB)
  Receive Date: 20210428
  Receipt Date: 20250519
  Transmission Date: 20250716
  Serious: Yes (Hospitalization, Other)
  Sender: NOVARTIS
  Company Number: GB-NOVARTISPH-NVSC2020GB022293

PATIENT
  Age: 61 Year
  Sex: Male

DRUGS (10)
  1. COSENTYX [Suspect]
     Active Substance: SECUKINUMAB
     Indication: Psoriatic arthropathy
     Dosage: 300 MG, QMO, INJECTION NOS
     Route: 050
     Dates: start: 2017
  2. COSENTYX [Suspect]
     Active Substance: SECUKINUMAB
     Dosage: 300 MG, QMO
     Route: 058
  3. COSENTYX [Suspect]
     Active Substance: SECUKINUMAB
     Dosage: 300 MG, QMO
     Route: 058
  4. COSENTYX [Suspect]
     Active Substance: SECUKINUMAB
     Dosage: 300 MG, QMO, INJECTION NOS
     Route: 050
  5. COSENTYX [Suspect]
     Active Substance: SECUKINUMAB
     Dosage: 300 MG, QMO (MAINTENANCE)
     Route: 058
     Dates: end: 20250101
  6. ADALIMUMAB [Suspect]
     Active Substance: ADALIMUMAB
     Indication: Product used for unknown indication
     Route: 065
  7. DULAGLUTIDE [Suspect]
     Active Substance: DULAGLUTIDE
     Indication: Diabetes mellitus
     Route: 065
  8. METFORMIN [Concomitant]
     Active Substance: METFORMIN HYDROCHLORIDE
     Indication: Diabetes mellitus
     Dosage: 1 G, BID
     Route: 048
  9. CETIRIZINE [Concomitant]
     Active Substance: CETIRIZINE HYDROCHLORIDE
     Indication: Antiallergic therapy
     Dosage: UNK, QD
     Route: 048
  10. CITALOPRAM [Concomitant]
     Active Substance: CITALOPRAM
     Indication: Depression
     Dosage: UNK, QD
     Route: 048

REACTIONS (38)
  - Sepsis [Recovered/Resolved]
  - Cellulitis [Recovered/Resolved with Sequelae]
  - COVID-19 [Recovering/Resolving]
  - Nausea [Not Recovered/Not Resolved]
  - Malaise [Not Recovered/Not Resolved]
  - Oropharyngeal pain [Not Recovered/Not Resolved]
  - Abdominal pain upper [Not Recovered/Not Resolved]
  - Psoriasis [Recovering/Resolving]
  - Skin plaque [Unknown]
  - Tuberculosis [Unknown]
  - Cerebral haemorrhage [Unknown]
  - Emotional distress [Unknown]
  - Aphasia [Unknown]
  - Pain [Unknown]
  - Psoriatic arthropathy [Unknown]
  - Peripheral swelling [Unknown]
  - Pain in extremity [Unknown]
  - Arthralgia [Unknown]
  - Joint swelling [Unknown]
  - Lower respiratory tract infection [Not Recovered/Not Resolved]
  - Tooth abscess [Recovering/Resolving]
  - Nasopharyngitis [Recovering/Resolving]
  - Abscess oral [Recovered/Resolved]
  - Memory impairment [Recovered/Resolved]
  - Influenza [Unknown]
  - Salmonellosis [Unknown]
  - Hypersomnia [Recovering/Resolving]
  - Fatigue [Recovering/Resolving]
  - Diarrhoea [Unknown]
  - Infection [Unknown]
  - Wrong product administered [Not Recovered/Not Resolved]
  - Product dose omission issue [Recovering/Resolving]
  - Wound [Recovering/Resolving]
  - Wound secretion [Recovering/Resolving]
  - Decubitus ulcer [Not Recovered/Not Resolved]
  - Localised infection [Not Recovered/Not Resolved]
  - Soft tissue necrosis [Not Recovered/Not Resolved]
  - Paraplegia [Unknown]

NARRATIVE: CASE EVENT DATE: 20220601
